FAERS Safety Report 8609410-X (Version None)
Quarter: 2012Q3

REPORT INFORMATION
  Report Type: 
  Country: None (occurrence: None)
  Receive Date: 20120821
  Receipt Date: 20120808
  Transmission Date: 20120928
  Serious: No
  Sender: FDA-Public Use
  Company Number: US-ASTRAZENECA-2012SE56330

PATIENT
  Age: 82 Year
  Sex: Female
  Weight: 77.6 kg

DRUGS (1)
  1. NEXIUM [Suspect]
     Indication: PROPHYLAXIS
     Route: 048
     Dates: start: 20111101

REACTIONS (3)
  - NASOPHARYNGITIS [None]
  - MALAISE [None]
  - OFF LABEL USE [None]
